FAERS Safety Report 6907453-5 (Version None)
Quarter: 2010Q3

REPORT INFORMATION
  Report Type: 
  Country: None (occurrence: None)
  Receive Date: 20100805
  Receipt Date: 20100614
  Transmission Date: 20110219
  Serious: Yes (Hospitalization)
  Sender: FDA-Public Use
  Company Number: US-BIOGENIDEC-2010BI026332

PATIENT
  Age: 50 Year
  Sex: Female

DRUGS (9)
  1. TYSABRI [Suspect]
     Indication: MULTIPLE SCLEROSIS
     Route: 042
  2. SIMVASTATIN [Concomitant]
  3. CLONAZEPAM [Concomitant]
  4. SOLIFENACIN [Concomitant]
  5. MULTI-VITAMIN [Concomitant]
  6. FISH OIL [Concomitant]
  7. GLUCOSAMINE CHONDROITIN [Concomitant]
  8. VITAMIN E [Concomitant]
  9. PRIMROSE OIL [Concomitant]

REACTIONS (2)
  - NORMOCHROMIC NORMOCYTIC ANAEMIA [None]
  - URINARY TRACT INFECTION [None]
